FAERS Safety Report 12154453 (Version 1)
Quarter: 2016Q1

REPORT INFORMATION
  Report Type: Spontaneous
  Country: US (occurrence: US)
  Receive Date: 20160307
  Receipt Date: 20160307
  Transmission Date: 20160526
  Serious: Yes (Other)
  Sender: FDA-Public Use
  Company Number: US-PFIZER INC-2016130781

PATIENT
  Age: 68 Year
  Sex: Female
  Weight: 55.79 kg

DRUGS (1)
  1. REVATIO [Suspect]
     Active Substance: SILDENAFIL CITRATE
     Indication: PULMONARY HYPERTENSION
     Dosage: 40 MG, 3X/DAY (20 MG, TWO TABLETS 3 TIMES A DAY)
     Route: 048

REACTIONS (4)
  - Product use issue [Not Recovered/Not Resolved]
  - Sinus disorder [Unknown]
  - Pyrexia [Recovered/Resolved]
  - Migraine [Not Recovered/Not Resolved]

NARRATIVE: CASE EVENT DATE: 20160224
